FAERS Safety Report 10679673 (Version 1)
Quarter: 2014Q4

REPORT INFORMATION
  Report Type: Spontaneous
  Country: TR (occurrence: TR)
  Receive Date: 20141229
  Receipt Date: 20141229
  Transmission Date: 20150529
  Serious: Yes (Life-Threatening, Hospitalization)
  Sender: FDA-Public Use
  Company Number: TR-ASTRAZENECA-2014SE98450

PATIENT
  Age: 67 Year
  Sex: Male

DRUGS (4)
  1. GLICLAZIDE [Concomitant]
     Active Substance: GLICLAZIDE
     Indication: TYPE 2 DIABETES MELLITUS
     Route: 048
  2. METFORMIN [Concomitant]
     Active Substance: METFORMIN HYDROCHLORIDE
     Indication: TYPE 2 DIABETES MELLITUS
  3. QUETIAPINE [Suspect]
     Active Substance: QUETIAPINE
     Indication: DEMENTIA
     Route: 048
  4. QUETIAPINE [Suspect]
     Active Substance: QUETIAPINE
     Indication: DEPRESSION
     Route: 048

REACTIONS (5)
  - Acute kidney injury [Recovered/Resolved]
  - Hypernatraemia [Recovered/Resolved]
  - Hyperosmolar hyperglycaemic state [Recovered/Resolved]
  - Atrioventricular block first degree [Recovered/Resolved]
  - Sinus tachycardia [Recovered/Resolved]
